FAERS Safety Report 8833184 (Version 1)
Quarter: 2012Q4

REPORT INFORMATION
  Report Type: 
  Country: US (occurrence: US)
  Receive Date: 20121010
  Receipt Date: 20121010
  Transmission Date: 20130627
  Serious: Yes (Hospitalization, Other)
  Sender: FDA-Public Use
  Company Number: US-JNJFOC-20121001439

PATIENT
  Sex: Female

DRUGS (7)
  1. DOXORUBICIN [Suspect]
     Indication: BREAST CANCER
     Dosage: standard/dose-dense
     Route: 042
  2. CYCLOPHOSPHAMIDE [Suspect]
     Indication: BREAST CANCER
     Dosage: standard/dose dense
     Route: 065
  3. PACLITAXEL [Suspect]
     Indication: BREAST CANCER
     Dosage: standard/dose-dense
     Route: 065
  4. FLUOROURACIL [Suspect]
     Indication: BREAST CANCER
     Route: 065
  5. DOCETAXEL [Suspect]
     Indication: BREAST CANCER
     Route: 065
  6. GRANULOCYTE COLONY STIMULATING FACTOR [Concomitant]
     Indication: PROPHYLAXIS
     Route: 065
  7. ERYTHROPOIETIN [Concomitant]
     Indication: PROPHYLAXIS
     Route: 065

REACTIONS (5)
  - Infection [Unknown]
  - Neutropenia [Unknown]
  - Fatigue [Unknown]
  - Febrile neutropenia [Unknown]
  - Embolism [Unknown]
